FAERS Safety Report 15022532 (Version 1)
Quarter: 2018Q2

REPORT INFORMATION
  Report Type: Spontaneous
  Country: US (occurrence: US)
  Receive Date: 20180618
  Receipt Date: 20180618
  Transmission Date: 20180711
  Serious: Yes (Life-Threatening)
  Sender: FDA-Public Use
  Company Number: US-ABBVIE-18P-163-2390599-00

PATIENT
  Age: 0 Day
  Sex: Male
  Weight: 1.92 kg

DRUGS (1)
  1. SURVANTA [Suspect]
     Active Substance: BERACTANT
     Indication: RESPIRATORY DISTRESS
     Dosage: 8 ML DOSE, 2 X 4 ML SOLUTION
     Route: 039
     Dates: start: 20180608, end: 20180608

REACTIONS (6)
  - Endotracheal intubation complication [Recovered/Resolved]
  - Mechanical ventilation [Recovered/Resolved]
  - Product quality issue [Not Recovered/Not Resolved]
  - Cyanosis [Recovered/Resolved]
  - Cardiac arrest [Recovered/Resolved]
  - Oxygen saturation decreased [Recovered/Resolved]

NARRATIVE: CASE EVENT DATE: 20180608
